FAERS Safety Report 22143728 (Version 4)
Quarter: 2023Q2

REPORT INFORMATION
  Report Type: Spontaneous
  Country: BR (occurrence: BR)
  Receive Date: 20230327
  Receipt Date: 20230420
  Transmission Date: 20230722
  Serious: Yes (Disabling, Other)
  Sender: FDA-Public Use
  Company Number: BR-SA-SAC20230322000589

PATIENT

DRUGS (1)
  1. LARONIDASE [Suspect]
     Active Substance: LARONIDASE
     Indication: Mucopolysaccharidosis I
     Dosage: 6 DF, QOW
     Route: 042
     Dates: start: 20190101

REACTIONS (12)
  - Gait inability [Unknown]
  - Hydrocephalus [Unknown]
  - Joint stiffness [Unknown]
  - Cognitive disorder [Unknown]
  - Behaviour disorder [Unknown]
  - Impaired quality of life [Unknown]
  - Speech disorder [Recovering/Resolving]
  - Disease progression [Unknown]
  - Secretion discharge [Recovering/Resolving]
  - Influenza [Recovering/Resolving]
  - Inappropriate schedule of product administration [Unknown]
  - Therapeutic response decreased [Unknown]

NARRATIVE: CASE EVENT DATE: 20230301
